FAERS Safety Report 21611407 (Version 1)
Quarter: 2022Q4

REPORT INFORMATION
  Report Type: Spontaneous
  Country: JP (occurrence: JP)
  Receive Date: 20221117
  Receipt Date: 20221117
  Transmission Date: 20230113
  Serious: Yes (Hospitalization)
  Sender: FDA-Public Use
  Company Number: JP-002147023-NVSJ2022JP101096

PATIENT

DRUGS (1)
  1. METFORMIN HYDROCHLORIDE\VILDAGLIPTIN [Suspect]
     Active Substance: METFORMIN HYDROCHLORIDE\VILDAGLIPTIN
     Indication: Product used for unknown indication
     Dosage: 1DF: METFORMIN HYDROCHLORIDE UNKNOWN/ VILDAGLIPTIN 50MG, UNK
     Route: 048

REACTIONS (1)
  - Palmoplantar pustulosis [Not Recovered/Not Resolved]
